FAERS Safety Report 4404720-4 (Version None)
Quarter: 2004Q3

REPORT INFORMATION
  Report Type: 
  Country: None (occurrence: None)
  Receive Date: 20040722
  Receipt Date: 20040715
  Transmission Date: 20050211
  Serious: Yes (Other)
  Sender: FDA-Public Use
  Company Number: 2004US002185

PATIENT
  Age: 50 Year
  Sex: Female

DRUGS (11)
  1. ZOFRAN [Suspect]
     Indication: PROPHYLAXIS OF NAUSEA AND VOMITING
     Dosage: 20MG SINGLE DOSE
     Route: 042
     Dates: start: 20040701, end: 20040701
  2. DYAZIDE [Concomitant]
     Indication: HYPERTENSION
  3. ADVIL [Concomitant]
     Indication: HEADACHE
  4. NORVASC [Concomitant]
     Indication: HYPERTENSION
  5. ADRIAMYCIN PFS [Concomitant]
     Indication: BREAST CANCER
  6. TAXOTERE [Concomitant]
     Indication: BREAST CANCER
  7. ALOXI [Concomitant]
     Indication: PROPHYLAXIS OF NAUSEA AND VOMITING
     Route: 042
  8. DIPHENHYDRAMINE [Concomitant]
     Indication: PREMEDICATION
  9. RANITIDINE [Concomitant]
     Indication: PREMEDICATION
  10. DECADRON [Concomitant]
     Indication: PREMEDICATION
  11. SODIUM CHLORIDE 0.9% [Concomitant]

REACTIONS (2)
  - PARAESTHESIA [None]
  - PARALYSIS FLACCID [None]
